FAERS Safety Report 8265345-6 (Version None)
Quarter: 2012Q2

REPORT INFORMATION
  Report Type: 
  Country: None (occurrence: None)
  Receive Date: 20120406
  Receipt Date: 20120403
  Transmission Date: 20120825
  Serious: Yes (Death)
  Sender: FDA-Public Use
  Company Number: JP-SANOFI-AVENTIS-2012SA020454

PATIENT
  Age: 72 Year
  Sex: Male
  Weight: 63.9 kg

DRUGS (3)
  1. TAXOTERE [Suspect]
     Route: 042
     Dates: start: 20120305, end: 20120305
  2. TAXOTERE [Suspect]
     Indication: PROSTATE CANCER
     Route: 042
     Dates: start: 20120125, end: 20120125
  3. FLUTAMIDE [Concomitant]
     Dates: start: 20120111, end: 20120318

REACTIONS (1)
  - INTERSTITIAL LUNG DISEASE [None]
